FAERS Safety Report 8436874-7 (Version None)
Quarter: 2012Q2

REPORT INFORMATION
  Report Type: 
  Country: None (occurrence: None)
  Receive Date: 20120323
  Receipt Date: 20110801
  Transmission Date: 20120825
  Serious: Yes (Hospitalization)
  Sender: FDA-Public Use
  Company Number: 163-21880-11063887

PATIENT
  Age: 62 Year
  Sex: Female

DRUGS (3)
  1. REVLIMID [Suspect]
     Indication: MULTIPLE MYELOMA
     Dosage: 12.5 MG, 1 IN 2D, PO, 10 MG, 1 IN 1 D, PO
     Route: 048
     Dates: start: 20110620, end: 20110601
  2. REVLIMID [Suspect]
     Indication: MULTIPLE MYELOMA
     Dosage: 12.5 MG, 1 IN 2D, PO, 10 MG, 1 IN 1 D, PO
     Route: 048
     Dates: start: 20110701
  3. REVLIMID [Suspect]

REACTIONS (2)
  - CYSTITIS [None]
  - RASH [None]
